FAERS Safety Report 9721923 (Version 5)
Quarter: 2014Q1

REPORT INFORMATION
  Report Type: Report from Study
  Country: CA (occurrence: CA)
  Receive Date: 20131202
  Receipt Date: 20140327
  Transmission Date: 20141002
  Serious: Yes (Other)
  Sender: FDA-Public Use
  Company Number: CA-ROCHE-1308223

PATIENT
  Sex: Female

DRUGS (9)
  1. AVASTIN [Suspect]
     Indication: BRAIN NEOPLASM MALIGNANT
     Route: 042
     Dates: start: 20130918, end: 20140226
  2. DILANTIN [Concomitant]
  3. DECADRON [Concomitant]
  4. LACTULOSE [Concomitant]
  5. SENOKOT [Concomitant]
  6. STEMETIL [Concomitant]
     Route: 065
  7. FRAGMIN [Concomitant]
     Dosage: DOSE: 15000 U
     Route: 065
  8. NYSTATIN [Concomitant]
  9. NOZINAN (CANADA) [Concomitant]
     Indication: AGITATION

REACTIONS (6)
  - Glomerular filtration rate abnormal [Unknown]
  - Deep vein thrombosis [Unknown]
  - Drug effect decreased [Unknown]
  - Blood test abnormal [Unknown]
  - Contusion [Not Recovered/Not Resolved]
  - Disease progression [Not Recovered/Not Resolved]
